FAERS Safety Report 8505819-3 (Version None)
Quarter: 2012Q3

REPORT INFORMATION
  Report Type: 
  Country: None (occurrence: None)
  Receive Date: 20120706
  Receipt Date: 20120706
  Transmission Date: 20120928
  Serious: Yes (Hospitalization)
  Sender: FDA-Public Use
  Company Number: None

PATIENT
  Age: 63 Year
  Sex: Male
  Weight: 54.3 kg

DRUGS (12)
  1. OXALIPLATIN [Suspect]
     Indication: PANCREATIC CARCINOMA
     Dosage: 65MG/M2
     Dates: start: 20120611, end: 20120625
  2. IRINOTECAN HCL [Suspect]
     Indication: PANCREATIC CARCINOMA
     Dosage: 150MG/M2
     Dates: start: 20120611, end: 20120625
  3. BACLOFEN [Concomitant]
  4. DEXAMETHASONE [Concomitant]
  5. LORAZEPAM [Concomitant]
  6. PROCHLORPERAZINE MALEATE [Concomitant]
  7. ONDANSETRON HYDROCHLORIDE [Concomitant]
  8. REGLAN [Concomitant]
  9. EMEND [Concomitant]
  10. MORPHINE [Concomitant]
  11. LEUCOVORIN CALCIUM [Suspect]
     Indication: PANCREATIC CARCINOMA
     Dosage: 400 MG
     Dates: start: 20120611, end: 20120625
  12. MS CONTIN [Concomitant]

REACTIONS (6)
  - NAUSEA [None]
  - WHITE BLOOD CELL COUNT INCREASED [None]
  - FAILURE TO THRIVE [None]
  - DECREASED APPETITE [None]
  - ANAEMIA [None]
  - NEUTROPHIL COUNT INCREASED [None]
